FAERS Safety Report 20103337 (Version 1)
Quarter: 2021Q4

REPORT INFORMATION
  Report Type: Spontaneous
  Country: None (occurrence: US)
  Receive Date: 20211123
  Receipt Date: 20211123
  Transmission Date: 20220304
  Serious: Yes (Other)
  Sender: FDA-Public Use
  Company Number: US-The Mentholatum Company-2122215

PATIENT
  Age: 42 Year
  Sex: Male
  Weight: 99.545 kg

DRUGS (1)
  1. EQUATE PAIN RELIEVING [Suspect]
     Active Substance: CAMPHOR (SYNTHETIC)\MENTHOL\METHYL SALICYLATE
     Indication: Analgesic intervention supportive therapy
     Route: 061
     Dates: start: 20211122, end: 20211122

REACTIONS (2)
  - Peripheral swelling [Recovering/Resolving]
  - Hypersensitivity [Recovering/Resolving]

NARRATIVE: CASE EVENT DATE: 20211122
